FAERS Safety Report 26177652 (Version 1)
Quarter: 2025Q4

REPORT INFORMATION
  Report Type: Spontaneous
  Country: US (occurrence: US)
  Receive Date: 20251219
  Receipt Date: 20251219
  Transmission Date: 20260118
  Serious: No
  Sender: SUPERNUS PHARMACEUTICALS, INC
  Company Number: US-SUP-SUP202506-002243

PATIENT
  Age: 52 Year
  Sex: Male

DRUGS (2)
  1. TROKENDI XR [Suspect]
     Active Substance: TOPIRAMATE
     Indication: Migraine
     Dates: start: 2023
  2. TROKENDI XR [Suspect]
     Active Substance: TOPIRAMATE
     Dates: start: 2025

REACTIONS (1)
  - Paraesthesia [Unknown]

NARRATIVE: CASE EVENT DATE: 20250101
